FAERS Safety Report 5133324-3 (Version None)
Quarter: 2006Q4

REPORT INFORMATION
  Report Type: 
  Country: None (occurrence: None)
  Receive Date: 20060831
  Receipt Date: 20060706
  Transmission Date: 20070319
  Serious: No
  Sender: FDA-Public Use
  Company Number: 2006-BP-07130BP

PATIENT
  Sex: Female

DRUGS (2)
  1. SPIRIVA [Suspect]
     Dosage: SEE IMAGE
     Dates: start: 20060401, end: 20060401
  2. SPIRIVA [Suspect]
     Dosage: SEE IMAGE
     Dates: start: 20060501

REACTIONS (4)
  - COUGH [None]
  - DRUG INEFFECTIVE [None]
  - NASAL CONGESTION [None]
  - VIRAL INFECTION [None]
